FAERS Safety Report 8771445 (Version 1)
Quarter: 2012Q4

REPORT INFORMATION
  Report Type: 
  Country: US (occurrence: US)
  Receive Date: 20120906
  Receipt Date: 20120906
  Transmission Date: 20130627
  Serious: Yes (Other)
  Sender: FDA-Public Use
  Company Number: US-GLAXOSMITHKLINE-A0992221A

PATIENT
  Age: 48 Year
  Sex: Male

DRUGS (1)
  1. VENTOLIN HFA [Suspect]
     Indication: ASTHMA
     Dosage: 90MCG Unknown
     Route: 055
     Dates: start: 20120417

REACTIONS (2)
  - Asthma [Unknown]
  - Inhalation therapy [Unknown]
